FAERS Safety Report 5832734-6 (Version None)
Quarter: 2008Q3

REPORT INFORMATION
  Report Type: 
  Country: None (occurrence: None)
  Receive Date: 20080804
  Receipt Date: 20080723
  Transmission Date: 20090109
  Serious: Yes (Other)
  Sender: FDA-Public Use
  Company Number: DE-PFIZER INC-2008029794

PATIENT
  Sex: Female

DRUGS (2)
  1. LYRICA [Suspect]
     Indication: CEREBROVASCULAR ACCIDENT
     Dosage: DAILY DOSE:150MG
     Route: 048
  2. LYRICA [Suspect]
     Indication: NEURALGIA

REACTIONS (9)
  - DIPLOPIA [None]
  - DIZZINESS [None]
  - DYSARTHRIA [None]
  - DYSKINESIA [None]
  - DYSPHAGIA [None]
  - HEMIPARESIS [None]
  - MUSCULAR WEAKNESS [None]
  - SALIVARY HYPERSECRETION [None]
  - SOMNOLENCE [None]
